FAERS Safety Report 21972232 (Version 1)
Quarter: 2023Q1

REPORT INFORMATION
  Report Type: Spontaneous
  Country: US (occurrence: None)
  Receive Date: 20230207
  Receipt Date: 20230207
  Transmission Date: 20230417
  Serious: Yes (Other)
  Sender: FDA-Public Use
  Company Number: None

PATIENT
  Sex: Female

DRUGS (3)
  1. CYANOCOBALAMIN\SEMAGLUTIDE [Suspect]
     Active Substance: CYANOCOBALAMIN\SEMAGLUTIDE
     Indication: Weight control
     Dosage: OTHER FREQUENCY : WEEKLY;?
     Route: 058
     Dates: start: 20221201, end: 20230203
  2. PHENTERMINE [Concomitant]
     Active Substance: PHENTERMINE
  3. LORAZEPAM [Concomitant]
     Active Substance: LORAZEPAM

REACTIONS (2)
  - Nausea [None]
  - Constipation [None]

NARRATIVE: CASE EVENT DATE: 20230203
